FAERS Safety Report 9278203 (Version 1)
Quarter: 2013Q2

REPORT INFORMATION
  Report Type: Spontaneous
  Country: US (occurrence: None)
  Receive Date: 20130506
  Receipt Date: 20130506
  Transmission Date: 20140414
  Serious: Yes (Other)
  Sender: FDA-Public Use
  Company Number: None

PATIENT
  Age: 59 Year
  Sex: Male
  Weight: 99.79 kg

DRUGS (1)
  1. FINASTERIDE [Suspect]
     Indication: PROSTATIC SPECIFIC ANTIGEN INCREASED
     Route: 048
     Dates: start: 20110815, end: 20120405

REACTIONS (4)
  - Penile pain [None]
  - Deformity [None]
  - Penile size reduced [None]
  - Peyronie^s disease [None]
